FAERS Safety Report 8610330-5 (Version None)
Quarter: 2012Q3

REPORT INFORMATION
  Report Type: 
  Country: None (occurrence: None)
  Receive Date: 20120822
  Receipt Date: 20120816
  Transmission Date: 20120928
  Serious: Yes (Other)
  Sender: FDA-Public Use
  Company Number: PHHY2012JP071643

PATIENT
  Age: 10 Year
  Sex: Male

DRUGS (1)
  1. IMATINIB MESYLATE [Suspect]
     Indication: CHRONIC MYELOID LEUKAEMIA TRANSFORMATION
     Route: 048

REACTIONS (4)
  - ACUTE GRAFT VERSUS HOST DISEASE [None]
  - VIRAL INFECTION [None]
  - CYTOMEGALOVIRUS INFECTION [None]
  - VENOOCCLUSIVE LIVER DISEASE [None]
